FAERS Safety Report 20921287 (Version 2)
Quarter: 2022Q3

REPORT INFORMATION
  Report Type: Spontaneous
  Country: US (occurrence: US)
  Receive Date: 20220606
  Receipt Date: 20220812
  Transmission Date: 20221027
  Serious: No
  Sender: FDA-Public Use
  Company Number: US-PFIZER INC-202200785897

PATIENT
  Age: 25 Year
  Sex: Male

DRUGS (2)
  1. SOMAVERT [Suspect]
     Active Substance: PEGVISOMANT
     Indication: Acromegaly
     Dosage: 10 MG, DAILY (EVERY DAY)
     Route: 058
     Dates: start: 201601
  2. SANDOSTATIN [Concomitant]
     Active Substance: OCTREOTIDE ACETATE
     Dosage: UNK, MONTHLY (ONCE A MONTH)

REACTIONS (2)
  - Laboratory test abnormal [Unknown]
  - Product dose omission issue [Unknown]
